FAERS Safety Report 25526308 (Version 2)
Quarter: 2025Q3

REPORT INFORMATION
  Report Type: Spontaneous
  Country: CA (occurrence: CA)
  Receive Date: 20250707
  Receipt Date: 20250915
  Transmission Date: 20251021
  Serious: Yes (Hospitalization, Other)
  Sender: MYLAN
  Company Number: CA-MYLANLABS-2025M1055841

PATIENT
  Age: 76 Year
  Sex: Female

DRUGS (40)
  1. VENLAFAXINE [Suspect]
     Active Substance: VENLAFAXINE HYDROCHLORIDE
     Indication: Depression
     Dosage: 400 MILLIGRAM, QD (1 EVERY 1 DAYS)
     Route: 065
  2. VENLAFAXINE [Suspect]
     Active Substance: VENLAFAXINE HYDROCHLORIDE
     Indication: Anxiety
     Dosage: 400 MILLIGRAM, QD (1 EVERY 1 DAYS)
  3. VENLAFAXINE [Suspect]
     Active Substance: VENLAFAXINE HYDROCHLORIDE
     Dosage: 400 MILLIGRAM, QD (1 EVERY 1 DAYS)
  4. VENLAFAXINE [Suspect]
     Active Substance: VENLAFAXINE HYDROCHLORIDE
     Dosage: 400 MILLIGRAM, QD (1 EVERY 1 DAYS)
     Route: 065
  5. VENLAFAXINE [Suspect]
     Active Substance: VENLAFAXINE HYDROCHLORIDE
     Dosage: 300 MILLIGRAM, QD (EVERY 1 DAYS)
     Route: 065
  6. VENLAFAXINE [Suspect]
     Active Substance: VENLAFAXINE HYDROCHLORIDE
     Dosage: 300 MILLIGRAM, QD (EVERY 1 DAYS)
  7. VENLAFAXINE [Suspect]
     Active Substance: VENLAFAXINE HYDROCHLORIDE
     Dosage: 300 MILLIGRAM, QD (EVERY 1 DAYS)
  8. VENLAFAXINE [Suspect]
     Active Substance: VENLAFAXINE HYDROCHLORIDE
     Dosage: 300 MILLIGRAM, QD (EVERY 1 DAYS)
     Route: 065
  9. VENLAFAXINE [Suspect]
     Active Substance: VENLAFAXINE HYDROCHLORIDE
     Dosage: 337.5 MILLIGRAM, QD (EVERY 1 DAYS)
  10. VENLAFAXINE [Suspect]
     Active Substance: VENLAFAXINE HYDROCHLORIDE
     Dosage: 337.5 MILLIGRAM, QD (EVERY 1 DAYS)
  11. VENLAFAXINE [Suspect]
     Active Substance: VENLAFAXINE HYDROCHLORIDE
     Dosage: 337.5 MILLIGRAM, QD (EVERY 1 DAYS)
     Route: 065
  12. VENLAFAXINE [Suspect]
     Active Substance: VENLAFAXINE HYDROCHLORIDE
     Dosage: 337.5 MILLIGRAM, QD (EVERY 1 DAYS)
     Route: 065
  13. VENLAFAXINE [Suspect]
     Active Substance: VENLAFAXINE HYDROCHLORIDE
     Dosage: 375 MILLIGRAM, QD (EVERY 1 DAYS)
  14. VENLAFAXINE [Suspect]
     Active Substance: VENLAFAXINE HYDROCHLORIDE
     Dosage: 375 MILLIGRAM, QD (EVERY 1 DAYS)
  15. VENLAFAXINE [Suspect]
     Active Substance: VENLAFAXINE HYDROCHLORIDE
     Dosage: 375 MILLIGRAM, QD (EVERY 1 DAYS)
     Route: 065
  16. VENLAFAXINE [Suspect]
     Active Substance: VENLAFAXINE HYDROCHLORIDE
     Dosage: 375 MILLIGRAM, QD (EVERY 1 DAYS)
     Route: 065
  17. DOXEPIN [Suspect]
     Active Substance: DOXEPIN
     Indication: Depression
     Dosage: 250 MILLIGRAM, QD (EVERY 1 DAYS)
  18. DOXEPIN [Suspect]
     Active Substance: DOXEPIN
     Indication: Anxiety
     Dosage: 250 MILLIGRAM, QD (EVERY 1 DAYS)
  19. DOXEPIN [Suspect]
     Active Substance: DOXEPIN
     Dosage: 250 MILLIGRAM, QD (EVERY 1 DAYS)
     Route: 065
  20. DOXEPIN [Suspect]
     Active Substance: DOXEPIN
     Dosage: 250 MILLIGRAM, QD (EVERY 1 DAYS)
     Route: 065
  21. DOXEPIN [Suspect]
     Active Substance: DOXEPIN
  22. DOXEPIN [Suspect]
     Active Substance: DOXEPIN
  23. DOXEPIN [Suspect]
     Active Substance: DOXEPIN
     Route: 065
  24. DOXEPIN [Suspect]
     Active Substance: DOXEPIN
     Route: 065
  25. DOXEPIN [Suspect]
     Active Substance: DOXEPIN
  26. DOXEPIN [Suspect]
     Active Substance: DOXEPIN
     Route: 065
  27. DOXEPIN [Suspect]
     Active Substance: DOXEPIN
  28. DOXEPIN [Suspect]
     Active Substance: DOXEPIN
     Route: 065
  29. FUROSEMIDE [Suspect]
     Active Substance: FUROSEMIDE
     Indication: Urinary retention
  30. FUROSEMIDE [Suspect]
     Active Substance: FUROSEMIDE
  31. FUROSEMIDE [Suspect]
     Active Substance: FUROSEMIDE
     Route: 065
  32. FUROSEMIDE [Suspect]
     Active Substance: FUROSEMIDE
     Route: 065
  33. FUROSEMIDE [Suspect]
     Active Substance: FUROSEMIDE
  34. FUROSEMIDE [Suspect]
     Active Substance: FUROSEMIDE
  35. FUROSEMIDE [Suspect]
     Active Substance: FUROSEMIDE
     Route: 065
  36. FUROSEMIDE [Suspect]
     Active Substance: FUROSEMIDE
     Route: 065
  37. FUROSEMIDE [Suspect]
     Active Substance: FUROSEMIDE
     Dosage: 20 MILLIGRAM, QD (1 EVERY 1 DAYS)
  38. FUROSEMIDE [Suspect]
     Active Substance: FUROSEMIDE
     Dosage: 20 MILLIGRAM, QD (1 EVERY 1 DAYS)
     Route: 065
  39. FUROSEMIDE [Suspect]
     Active Substance: FUROSEMIDE
     Dosage: 20 MILLIGRAM, QD (1 EVERY 1 DAYS)
  40. FUROSEMIDE [Suspect]
     Active Substance: FUROSEMIDE
     Dosage: 20 MILLIGRAM, QD (1 EVERY 1 DAYS)
     Route: 065

REACTIONS (4)
  - Cognitive disorder [Recovering/Resolving]
  - Therapy cessation [Recovering/Resolving]
  - Autonomic neuropathy [Recovering/Resolving]
  - Dizziness [Recovering/Resolving]
